FAERS Safety Report 7495888-4 (Version None)
Quarter: 2011Q2

REPORT INFORMATION
  Report Type: 
  Country: None (occurrence: None)
  Receive Date: 20110523
  Receipt Date: 20110513
  Transmission Date: 20111010
  Serious: Yes (Death, Life-Threatening, Hospitalization, Other)
  Sender: FDA-Public Use
  Company Number: JP-BRISTOL-MYERS SQUIBB COMPANY-14718795

PATIENT
  Age: 66 Year
  Sex: Female
  Weight: 44 kg

DRUGS (8)
  1. NIZATIDINE [Concomitant]
     Dosage: TAB
     Route: 048
     Dates: start: 20090709, end: 20090725
  2. EPINEPHRINE [Concomitant]
     Dosage: FORMULATION-INJ;1 DF: 3A/DAY
     Route: 042
     Dates: start: 20090725, end: 20090725
  3. SULFAMETHOXAZOLE [Concomitant]
     Indication: PROPHYLAXIS
     Dosage: 1 DF: 2 TAB;FORMULATION :TAB
     Route: 048
     Dates: start: 20090709, end: 20090725
  4. SPRYCEL [Suspect]
     Indication: CHRONIC MYELOID LEUKAEMIA
     Dosage: DURATION OF THERAPY: 14D;09-22JUL09;23JUL-27JUL09(50MG1/2DAY).
     Route: 048
     Dates: start: 20090709, end: 20090727
  5. ZOLPIDEM [Concomitant]
     Dosage: TAB
     Route: 048
     Dates: start: 20090709, end: 20090725
  6. NILOTINIB [Suspect]
     Indication: CHRONIC MYELOID LEUKAEMIA
     Dosage: CAPSULE
     Route: 048
     Dates: start: 20090410, end: 20090708
  7. ALLOPURINOL [Concomitant]
     Indication: PROPHYLAXIS
     Route: 048
     Dates: start: 20090713, end: 20090725
  8. ITRACONAZOLE [Concomitant]
     Dosage: SOLUTION
     Route: 048
     Dates: start: 20090709, end: 20090725

REACTIONS (11)
  - PNEUMONIA [None]
  - ENCEPHALOPATHY [None]
  - GENERALISED OEDEMA [None]
  - ANAEMIA [None]
  - PLEURAL EFFUSION [None]
  - OEDEMA PERIPHERAL [None]
  - CARDIO-RESPIRATORY ARREST [None]
  - WHITE BLOOD CELL COUNT DECREASED [None]
  - PLATELET COUNT DECREASED [None]
  - NEUTROPHIL COUNT DECREASED [None]
  - FEBRILE NEUTROPENIA [None]
